FAERS Safety Report 15020733 (Version 1)
Quarter: 2018Q2

REPORT INFORMATION
  Report Type: Spontaneous
  Country: US (occurrence: US)
  Receive Date: 20180618
  Receipt Date: 20180618
  Transmission Date: 20180711
  Serious: Yes (Hospitalization, Other)
  Sender: FDA-Public Use
  Company Number: US-BIOGEN-2018BI00595337

PATIENT
  Sex: Female

DRUGS (1)
  1. TYSABRI [Suspect]
     Active Substance: NATALIZUMAB
     Indication: MULTIPLE SCLEROSIS
     Route: 065
     Dates: start: 20140725

REACTIONS (18)
  - Pain in extremity [Unknown]
  - Fear of eating [Unknown]
  - Catheter placement [Unknown]
  - Asthenia [Unknown]
  - Decreased appetite [Unknown]
  - Oxygen therapy [Unknown]
  - Vaginal infection [Unknown]
  - Headache [Unknown]
  - Musculoskeletal disorder [Unknown]
  - Seizure [Unknown]
  - Migraine [Unknown]
  - Chest pain [Unknown]
  - Visual impairment [Unknown]
  - Weight decreased [Unknown]
  - Muscular weakness [Unknown]
  - Decreased immune responsiveness [Unknown]
  - Fatigue [Unknown]
  - Fall [Recovered/Resolved]
